FAERS Safety Report 7580051-9 (Version None)
Quarter: 2011Q2

REPORT INFORMATION
  Report Type: 
  Country: None (occurrence: None)
  Receive Date: 20110629
  Receipt Date: 20110620
  Transmission Date: 20111010
  Serious: Yes (Hospitalization, Other)
  Sender: FDA-Public Use
  Company Number: US-ASTRAZENECA-2011SE34402

PATIENT
  Age: 22773 Day
  Sex: Male

DRUGS (12)
  1. PLAVIX [Suspect]
     Indication: ANTIPLATELET THERAPY
     Route: 048
     Dates: start: 20090512, end: 20110120
  2. ASPIRIN [Suspect]
     Route: 048
     Dates: start: 20090512
  3. ZANTAC [Suspect]
     Indication: GASTROOESOPHAGEAL REFLUX DISEASE
     Route: 048
     Dates: start: 20091207
  4. PLAVIX [Suspect]
     Route: 048
     Dates: start: 20110127
  5. ASPIRIN [Suspect]
     Indication: ANTIPLATELET THERAPY
     Route: 048
     Dates: start: 20090511, end: 20090512
  6. NITROGLYCERIN [Suspect]
     Indication: ANGINA PECTORIS
     Route: 060
     Dates: start: 20090512
  7. ROSUVASTATIN [Suspect]
     Indication: CORONARY ARTERY DISEASE
     Route: 048
     Dates: start: 20090515
  8. TOPROL-XL [Suspect]
     Indication: HYPERTENSION
     Route: 048
     Dates: start: 20090908
  9. DIOVAN [Suspect]
     Indication: HYPERTENSION
     Route: 048
     Dates: start: 20090908
  10. PLAVIX [Suspect]
     Indication: CORONARY ARTERY DISEASE
     Route: 048
     Dates: start: 20090512, end: 20110120
  11. PLAVIX [Suspect]
     Route: 048
     Dates: start: 20110127
  12. HYDROCHLOROTHIAZIDE [Concomitant]
     Indication: HYPERTENSION
     Route: 048
     Dates: start: 20090512

REACTIONS (1)
  - IN-STENT CORONARY ARTERY RESTENOSIS [None]
